FAERS Safety Report 10508836 (Version 2)
Quarter: 2014Q4

REPORT INFORMATION
  Report Type: Report from Study
  Country: US (occurrence: US)
  Receive Date: 20141009
  Receipt Date: 20141009
  Transmission Date: 20150528
  Serious: Yes (Death, Hospitalization)
  Sender: FDA-Public Use
  Company Number: US-ABBVIE-14P-163-1292301-00

PATIENT
  Sex: Male
  Weight: 66.28 kg

DRUGS (1)
  1. CREON [Suspect]
     Active Substance: PANCRELIPASE AMYLASE\PANCRELIPASE LIPASE\PANCRELIPASE PROTEASE
     Indication: PANCREATIC INSUFFICIENCY
     Dosage: DELAYED-RELEASE CAPSULES; WITH MEALS
     Route: 065
     Dates: end: 201410

REACTIONS (2)
  - Pancreatic carcinoma recurrent [Fatal]
  - Sepsis [Recovered/Resolved]
